FAERS Safety Report 6143838-5 (Version None)
Quarter: 2009Q2

REPORT INFORMATION
  Report Type: 
  Country: None (occurrence: None)
  Receive Date: 20090403
  Receipt Date: 20090327
  Transmission Date: 20091009
  Serious: Yes (Hospitalization)
  Sender: FDA-Public Use
  Company Number: DE-MERCK-0903DEU00210

PATIENT
  Sex: Male

DRUGS (1)
  1. ZETIA [Suspect]
     Route: 048
     Dates: start: 20090101

REACTIONS (3)
  - ABDOMINAL PAIN [None]
  - BLOOD CREATINE PHOSPHOKINASE INCREASED [None]
  - GASTROINTESTINAL DISORDER [None]
